FAERS Safety Report 7767189-8 (Version None)
Quarter: 2011Q3

REPORT INFORMATION
  Report Type: 
  Country: None (occurrence: None)
  Receive Date: 20110922
  Receipt Date: 20110602
  Transmission Date: 20111222
  Serious: No
  Sender: FDA-Public Use
  Company Number: US-ASTRAZENECA-2011SE34055

PATIENT
  Age: 57 Year
  Sex: Female

DRUGS (5)
  1. SEROQUEL [Suspect]
     Route: 048
  2. SEROQUEL [Suspect]
     Indication: BIPOLAR DISORDER
     Route: 048
  3. XANAX [Concomitant]
  4. PRISTIQ [Concomitant]
  5. PERCOCET [Concomitant]

REACTIONS (4)
  - NERVOUSNESS [None]
  - ADJUSTMENT DISORDER WITH MIXED ANXIETY AND DEPRESSED MOOD [None]
  - MOOD SWINGS [None]
  - DISORIENTATION [None]
